FAERS Safety Report 10853797 (Version 2)
Quarter: 2015Q1

REPORT INFORMATION
  Report Type: Spontaneous
  Country: DE (occurrence: DE)
  Receive Date: 20150223
  Receipt Date: 20150310
  Transmission Date: 20150721
  Serious: Yes (Hospitalization, Other)
  Sender: FDA-Public Use
  Company Number: DE-JNJFOC-20150211738

PATIENT
  Age: 84 Year
  Sex: Male
  Weight: 70 kg

DRUGS (3)
  1. XARELTO [Suspect]
     Active Substance: RIVAROXABAN
     Indication: CEREBROVASCULAR ACCIDENT PROPHYLAXIS
     Route: 048
     Dates: start: 20150131
  2. XARELTO [Suspect]
     Active Substance: RIVAROXABAN
     Indication: ATRIAL FIBRILLATION
     Route: 048
     Dates: start: 20150131
  3. PROPAFENON [Concomitant]
     Active Substance: PROPAFENONE
     Route: 065

REACTIONS (5)
  - Craniocerebral injury [Recovered/Resolved]
  - Haematoma [Recovered/Resolved]
  - Cerebral haemorrhage [Recovered/Resolved]
  - Facial bones fracture [Recovered/Resolved]
  - Fall [Recovered/Resolved]

NARRATIVE: CASE EVENT DATE: 20150131
